FAERS Safety Report 5813398-4 (Version None)
Quarter: 2008Q3

REPORT INFORMATION
  Report Type: 
  Country: None (occurrence: None)
  Receive Date: 20080714
  Receipt Date: 20080708
  Transmission Date: 20090109
  Serious: Yes (Hospitalization)
  Sender: FDA-Public Use
  Company Number: FABR-1000316

PATIENT
  Age: 35 Year
  Sex: Male
  Weight: 83.9 kg

DRUGS (4)
  1. FABRAZYME [Suspect]
     Indication: FABRY'S DISEASE
     Dosage: 85 MG, Q2W, INTRAVENOUS
     Route: 042
     Dates: start: 19990621
  2. BENADRYL [Concomitant]
  3. HYDROCODONE (HYDROCODONE) [Concomitant]
  4. LISINOPRIL [Concomitant]

REACTIONS (1)
  - APPENDICITIS [None]
